FAERS Safety Report 8169496-6 (Version None)
Quarter: 2012Q1

REPORT INFORMATION
  Report Type: 
  Country: None (occurrence: None)
  Receive Date: 20120228
  Receipt Date: 20120214
  Transmission Date: 20120608
  Serious: Yes (Hospitalization)
  Sender: FDA-Public Use
  Company Number: FR-SANOFI-AVENTIS-2012SA009734

PATIENT
  Age: 59 Year
  Sex: Female

DRUGS (3)
  1. HUMIRA [Suspect]
     Indication: PSORIATIC ARTHROPATHY
     Route: 058
     Dates: start: 20110411, end: 20110518
  2. LANTUS [Suspect]
     Route: 058
  3. NICARDIPINE HCL [Suspect]
     Route: 048

REACTIONS (6)
  - AZOTAEMIA [None]
  - HYPERPHOSPHATAEMIA [None]
  - HYPERCALCAEMIA [None]
  - RENAL FAILURE [None]
  - ASTHENIA [None]
  - MUSCULOSKELETAL PAIN [None]
